FAERS Safety Report 7107758-1 (Version None)
Quarter: 2010Q4

REPORT INFORMATION
  Report Type: 
  Country: None (occurrence: None)
  Receive Date: 20101117
  Receipt Date: 20101117
  Transmission Date: 20110411
  Serious: Yes (Hospitalization)
  Sender: FDA-Public Use
  Company Number: SE-JNJFOC-20101102980

PATIENT
  Sex: Male

DRUGS (15)
  1. PEVARYL 1 % [Suspect]
     Indication: TINEA VERSICOLOUR
     Route: 062
  2. PEVARYL 1 % [Suspect]
     Indication: SKIN CANDIDA
     Route: 062
  3. PEVARYL 1 % [Suspect]
     Indication: TINEA INFECTION
     Route: 062
  4. WARAN [Interacting]
     Indication: ILL-DEFINED DISORDER
     Route: 048
  5. INSULIN (NOVOMIX 30 FLEXPEN) [Concomitant]
     Route: 065
  6. CREON [Concomitant]
     Route: 048
  7. NORSPAN [Concomitant]
     Route: 062
  8. ZOPIKLON [Concomitant]
     Route: 065
  9. PROPAVAN [Concomitant]
     Route: 048
  10. BEHEPAN [Concomitant]
     Route: 048
  11. DUROFERON [Concomitant]
     Route: 048
  12. KALEORID [Concomitant]
     Route: 048
  13. IMPUGAN [Concomitant]
     Route: 048
  14. HIPREX [Concomitant]
     Route: 065
  15. CELLUVISC [Concomitant]
     Route: 047

REACTIONS (4)
  - DRUG INTERACTION [None]
  - HAEMOGLOBIN DECREASED [None]
  - INTERNATIONAL NORMALISED RATIO INCREASED [None]
  - PROTHROMBIN LEVEL DECREASED [None]
